FAERS Safety Report 9362174 (Version 1)
Quarter: 2013Q2

REPORT INFORMATION
  Report Type: Spontaneous
  Country: US (occurrence: US)
  Receive Date: 20130622
  Receipt Date: 20130622
  Transmission Date: 20140414
  Serious: No
  Sender: FDA-Public Use
  Company Number: US-B.I. PHARMACEUTICALS,INC./RIDGEFIELD-2013-BI-17093BP

PATIENT
  Age: 69 Year
  Sex: Female

DRUGS (4)
  1. COMBIVENT [Suspect]
     Dosage: STRENGTH: 18 MCG / 103 MCG, DAILY DOSE: 144 MCG / 824 MCG
     Route: 055
     Dates: end: 201305
  2. COMBIVENT [Suspect]
     Dosage: STRENGTH: 20 MCG/100 MCG DAILY DOSE: 80 MCG/400 MCG
     Route: 055
     Dates: start: 201305
  3. PERCOCET [Concomitant]
     Indication: PAIN
     Route: 048
  4. XANAX [Concomitant]
     Indication: ANXIETY
     Route: 048

REACTIONS (4)
  - Oedema peripheral [Not Recovered/Not Resolved]
  - Eye swelling [Recovered/Resolved]
  - Oedema peripheral [Not Recovered/Not Resolved]
  - Drug ineffective [Not Recovered/Not Resolved]
